FAERS Safety Report 5823114-8 (Version None)
Quarter: 2008Q3

REPORT INFORMATION
  Report Type: 
  Country: None (occurrence: None)
  Receive Date: 20080725
  Receipt Date: 20080716
  Transmission Date: 20090109
  Serious: Yes (Other)
  Sender: FDA-Public Use
  Company Number: US-JNJFOC-20080704567

PATIENT
  Age: 88 Year
  Sex: Male
  Weight: 103.42 kg

DRUGS (3)
  1. FAST ACTING MYLANTA ORIGINAL [Suspect]
     Indication: FLATULENCE
     Route: 048
  2. CARVEDILOL [Concomitant]
     Indication: HYPERTENSION
  3. LISINOPRIL [Concomitant]
     Indication: HYPERTENSION

REACTIONS (2)
  - EXPIRED DRUG ADMINISTERED [None]
  - HAEMOPTYSIS [None]
